FAERS Safety Report 11964499 (Version 1)
Quarter: 2016Q1

REPORT INFORMATION
  Report Type: Spontaneous
  Country: US (occurrence: None)
  Receive Date: 20160122
  Receipt Date: 20160122
  Transmission Date: 20160526
  Serious: No
  Sender: FDA-Public Use
  Company Number: None

PATIENT
  Age: 57 Year
  Sex: Female
  Weight: 81.65 kg

DRUGS (6)
  1. ALLEGRA- GENERIC 180MG [Suspect]
     Active Substance: FEXOFENADINE HYDROCHLORIDE
     Indication: PULMONARY CONGESTION
     Dosage: 1 PILL, ONCE DAILY, TAKEN BY MOUTH?
  2. GENERIC ASTHMA MEDICATION [Concomitant]
     Active Substance: UNSPECIFIED INGREDIENT
  3. ALLEGRA- GENERIC 180MG [Suspect]
     Active Substance: FEXOFENADINE HYDROCHLORIDE
     Indication: PRURITUS
     Dosage: 1 PILL, ONCE DAILY, TAKEN BY MOUTH?
  4. ALLEGRA- GENERIC 180MG [Suspect]
     Active Substance: FEXOFENADINE HYDROCHLORIDE
     Indication: SINUSITIS
     Dosage: 1 PILL, ONCE DAILY, TAKEN BY MOUTH?
  5. VIT D SUPPLEMENT [Concomitant]
  6. MULTIVITAMIN [Concomitant]
     Active Substance: VITAMINS

REACTIONS (1)
  - Abnormal dreams [None]

NARRATIVE: CASE EVENT DATE: 20151125
